FAERS Safety Report 12877770 (Version 2)
Quarter: 2016Q4

REPORT INFORMATION
  Report Type: Spontaneous
  Country: US (occurrence: US)
  Receive Date: 20161024
  Receipt Date: 20161208
  Transmission Date: 20170207
  Serious: No
  Sender: FDA-Public Use
  Company Number: US-PFIZER INC-2016493181

PATIENT
  Age: 72 Year
  Sex: Female

DRUGS (1)
  1. INLYTA [Suspect]
     Active Substance: AXITINIB
     Indication: ADRENAL GLAND CANCER
     Dosage: 10 MG, UNK

REACTIONS (2)
  - Neoplasm progression [Not Recovered/Not Resolved]
  - Diarrhoea [Not Recovered/Not Resolved]
